FAERS Safety Report 4336334-9 (Version None)
Quarter: 2004Q2

REPORT INFORMATION
  Report Type: 
  Country: None (occurrence: None)
  Receive Date: 20040412
  Receipt Date: 20040205
  Transmission Date: 20050107
  Serious: Yes (Death, Hospitalization)
  Sender: FDA-Public Use
  Company Number: 200410386EU

PATIENT
  Age: 68 Year
  Sex: Female

DRUGS (5)
  1. DOCETAXEL [Suspect]
     Indication: OVARIAN CANCER
     Route: 042
     Dates: start: 20040107, end: 20040107
  2. CELECOXIB [Suspect]
     Indication: OVARIAN CANCER
     Route: 048
     Dates: start: 20040107, end: 20040108
  3. CARBOPLATIN [Suspect]
     Indication: OVARIAN CANCER
     Route: 042
     Dates: start: 20040107, end: 20040107
  4. AUGMENTIN [Concomitant]
  5. PANTOPRAZOLE [Concomitant]

REACTIONS (6)
  - BRONCHOPLEURAL FISTULA [None]
  - DUODENAL ULCER [None]
  - GASTROINTESTINAL NECROSIS [None]
  - HAEMATEMESIS [None]
  - MELAENA [None]
  - RESPIRATORY FAILURE [None]
